FAERS Safety Report 8824302 (Version 1)
Quarter: 2012Q4

REPORT INFORMATION
  Report Type: Report from Study
  Country: JP (occurrence: JP)
  Receive Date: 20121004
  Receipt Date: 20121004
  Transmission Date: 20130627
  Serious: Yes (Hospitalization, Other)
  Sender: FDA-Public Use
  Company Number: JP-009507513-2012SP027856

PATIENT
  Age: 64 Year
  Sex: Female
  Weight: 49 kg

DRUGS (18)
  1. PEGINTRON [Suspect]
     Indication: HEPATITIS C
     Dosage: 1.5 Microgram per kilogram, qw
     Route: 058
     Dates: start: 20120306, end: 20120501
  2. PEGINTRON [Suspect]
     Dosage: 1.5 Microgram per kilogram, qw
     Route: 058
     Dates: start: 20120516, end: 20120829
  3. REBETOL [Suspect]
     Indication: HEPATITIS C
     Dosage: 600 mg, qd
     Route: 048
     Dates: start: 20120306, end: 20120327
  4. REBETOL [Suspect]
     Dosage: 400 mg, qd
     Route: 048
     Dates: start: 20120328, end: 20120410
  5. REBETOL [Suspect]
     Dosage: 200 mg, QD
     Route: 048
     Dates: start: 20120411, end: 20120501
  6. REBETOL [Suspect]
     Dosage: 200 mg, qd
     Route: 048
     Dates: start: 20120516
  7. REBETOL [Suspect]
     Dosage: 400 mg, qd
     Route: 048
     Dates: start: 20120620, end: 20120829
  8. TELAVIC [Suspect]
     Indication: HEPATITIS C
     Dosage: 1500 mg, qd
     Route: 048
     Dates: start: 20120306, end: 20120501
  9. TELAVIC [Suspect]
     Dosage: 1000 mg, qd
     Route: 048
     Dates: start: 20120516, end: 20120530
  10. MAGLAX (MAGNESIUM OXIDE) [Concomitant]
     Indication: CONSTIPATION
     Dosage: 1.8 g, qd
     Route: 048
  11. MAGLAX (MAGNESIUM OXIDE) [Concomitant]
     Dosage: 900 mg, qd
     Route: 048
  12. METHYCOBAL [Concomitant]
     Indication: CARPAL TUNNEL SYNDROME
     Dosage: 1.5 mg, qd
     Route: 048
  13. OPALMON [Concomitant]
     Indication: CARPAL TUNNEL SYNDROME
     Dosage: 15 Microgram, qd
     Route: 048
  14. LIVALO [Concomitant]
     Indication: HYPERLIPIDAEMIA
     Dosage: 1 mg, qd
     Route: 048
  15. EPADEL [Concomitant]
     Indication: HYPERLIPIDAEMIA
     Dosage: 1800 mg, qd
     Route: 048
  16. CLARITIN REDITABS [Concomitant]
     Indication: PROPHYLAXIS
     Dosage: 10 mg, qd
     Route: 048
  17. FEROTYM [Concomitant]
     Indication: IRON DEFICIENCY ANAEMIA
     Dosage: 100 mg, qd
     Route: 048
  18. GOODMIN [Concomitant]
     Indication: INSOMNIA
     Dosage: 0.25 DF, qd
     Route: 048

REACTIONS (5)
  - Loss of consciousness [Recovered/Resolved]
  - Anaemia [Not Recovered/Not Resolved]
  - Anaemia [Not Recovered/Not Resolved]
  - Anaemia [Not Recovered/Not Resolved]
  - Bacterial infection [Recovered/Resolved]
